FAERS Safety Report 9580939 (Version 1)
Quarter: 2013Q3

REPORT INFORMATION
  Report Type: Spontaneous
  Country: US (occurrence: None)
  Receive Date: 20130916
  Receipt Date: 20130916
  Transmission Date: 20140515
  Serious: Yes (Other)
  Sender: FDA-Public Use
  Company Number: JPI-P-026169

PATIENT
  Age: 53 Year
  Sex: Female
  Weight: 88.91 kg

DRUGS (15)
  1. XYREM [Suspect]
     Indication: CATAPLEXY
     Route: 048
     Dates: start: 20120928, end: 2012
  2. ESTROGENS, CONJUGATED [Concomitant]
  3. CITALOPRAM HYDROBROMIDE [Concomitant]
  4. FLUTICASONE W/SALMETEROL [Concomitant]
  5. TIOTROPIUM BROMIDE [Concomitant]
  6. QUINAPRIL HYDROCHLORIDE [Concomitant]
  7. ALBUTEROL (VIA NEBULIZER) [Concomitant]
  8. ALBUTEROL (VIA INHALER) [Concomitant]
  9. MORPHINE (VIA PUMP) [Concomitant]
  10. RHAMNUS PURSHIANA [Concomitant]
  11. ACETYLSALICYLIC ACID [Concomitant]
  12. MONTELUKAST SODIUM [Concomitant]
  13. CLONAZEPAM [Concomitant]
  14. IBUPROFEN [Concomitant]
  15. METHYLPHENIDATE [Concomitant]

REACTIONS (4)
  - Suicidal ideation [None]
  - Depression [None]
  - Emotional disorder [None]
  - Crying [None]
